FAERS Safety Report 12662670 (Version 2)
Quarter: 2016Q3

REPORT INFORMATION
  Report Type: Report from Study
  Country: US (occurrence: US)
  Receive Date: 20160818
  Receipt Date: 20160907
  Transmission Date: 20161109
  Serious: Yes (Death, Hospitalization, Other)
  Sender: FDA-Public Use
  Company Number: US-ROCHE-1699802

PATIENT
  Age: 77 Year
  Sex: Male

DRUGS (14)
  1. CEFUROXIME. [Concomitant]
     Active Substance: CEFUROXIME
  2. ESBRIET [Suspect]
     Active Substance: PIRFENIDONE
     Indication: IDIOPATHIC PULMONARY FIBROSIS
     Dosage: 3 CAPS 3 X A DAY
     Route: 048
     Dates: start: 20141020
  3. PREDNISONE. [Concomitant]
     Active Substance: PREDNISONE
     Indication: LUNG DISORDER
  4. DIGOXIN. [Concomitant]
     Active Substance: DIGOXIN
  5. LEVALBUTEROL. [Concomitant]
     Active Substance: LEVALBUTEROL
  6. ESBRIET [Suspect]
     Active Substance: PIRFENIDONE
     Indication: INTERSTITIAL LUNG DISEASE
     Route: 048
     Dates: start: 20160317
  7. METOPROLOL. [Concomitant]
     Active Substance: METOPROLOL
  8. LEVOTHYROXINE. [Concomitant]
     Active Substance: LEVOTHYROXINE
     Indication: HYPOTHYROIDISM
     Route: 065
  9. WARFARIN [Concomitant]
     Active Substance: WARFARIN
  10. IPRATROPIUM [Concomitant]
     Active Substance: IPRATROPIUM
  11. OMEPRAZOLE. [Concomitant]
     Active Substance: OMEPRAZOLE
  12. FUROSEMIDE. [Concomitant]
     Active Substance: FUROSEMIDE
  13. AMLODIPINE [Concomitant]
     Active Substance: AMLODIPINE BESYLATE
  14. ZOLPIDEM [Concomitant]
     Active Substance: ZOLPIDEM\ZOLPIDEM TARTRATE

REACTIONS (9)
  - Heart rate increased [Recovered/Resolved]
  - Atrial fibrillation [Not Recovered/Not Resolved]
  - Oxygen saturation decreased [Recovered/Resolved]
  - Dyspnoea [Recovered/Resolved]
  - Haemoptysis [Recovered/Resolved]
  - Pulmonary hypertension [Not Recovered/Not Resolved]
  - Rash [Recovered/Resolved]
  - Death [Fatal]
  - Pulmonary function test abnormal [Not Recovered/Not Resolved]

NARRATIVE: CASE EVENT DATE: 20141109
